FAERS Safety Report 10269189 (Version 1)
Quarter: 2014Q2

REPORT INFORMATION
  Report Type: Spontaneous
  Country: US (occurrence: US)
  Receive Date: 20140630
  Receipt Date: 20140630
  Transmission Date: 20141212
  Serious: No
  Sender: FDA-Public Use
  Company Number: -SAAVPROD-HECT-1000211

PATIENT
  Age: 69 Year
  Sex: Male

DRUGS (1)
  1. DOXERCALCIFEROL [Suspect]
     Indication: PRODUCT USED FOR UNKNOWN INDICATION
     Dosage: UNK, TWO DOSES
     Route: 065
     Dates: start: 20130702

REACTIONS (1)
  - Medication error [Unknown]
